FAERS Safety Report 4358407-7 (Version None)
Quarter: 2004Q2

REPORT INFORMATION
  Report Type: 
  Country: None (occurrence: None)
  Receive Date: 20040514
  Receipt Date: 20040322
  Transmission Date: 20050107
  Serious: Yes (Hospitalization)
  Sender: FDA-Public Use
  Company Number: IT-ROCHE-362295

PATIENT
  Age: 58 Year
  Sex: Female

DRUGS (1)
  1. ROCEPHIN [Suspect]
     Dosage: STRENGHT AND FORMULATION: 1G/3.5ML, VIAL.
     Route: 042
     Dates: start: 20040316, end: 20040316

REACTIONS (6)
  - ANAPHYLACTIC SHOCK [None]
  - EXANTHEM [None]
  - HYPOTENSION [None]
  - RASH ERYTHEMATOUS [None]
  - SYNCOPE [None]
  - VOMITING [None]
